FAERS Safety Report 5087478-8 (Version None)
Quarter: 2006Q3

REPORT INFORMATION
  Report Type: 
  Country: None (occurrence: None)
  Receive Date: 20060823
  Receipt Date: 20060823
  Transmission Date: 20061208
  Serious: Yes (Hospitalization)
  Sender: FDA-Public Use
  Company Number: None

PATIENT
  Sex: Male
  Weight: 36.2 kg

DRUGS (3)
  1. OXACILLIN [Suspect]
     Indication: OSTEOARTHRITIS
     Dosage: 1.5GM  EVERY 6 HOURS  IV BOLUS
     Route: 040
     Dates: start: 20060817, end: 20060818
  2. ACETAMINOPHEN [Concomitant]
  3. IBUPROFEN [Concomitant]

REACTIONS (4)
  - ARTHRALGIA [None]
  - BONE PAIN [None]
  - MUSCULOSKELETAL PAIN [None]
  - PYREXIA [None]
